FAERS Safety Report 8600366-2 (Version None)
Quarter: 2012Q3

REPORT INFORMATION
  Report Type: 
  Country: None (occurrence: None)
  Receive Date: 20120817
  Receipt Date: 20120813
  Transmission Date: 20120928
  Serious: No
  Sender: FDA-Public Use
  Company Number: US-PFIZER INC-2012197869

PATIENT
  Age: 66 Year
  Sex: Female
  Weight: 113 kg

DRUGS (4)
  1. INDERAL [Concomitant]
     Indication: HYPERTENSION
     Dosage: UNK
  2. SYNTHROID [Concomitant]
     Dosage: UNK
  3. MAXZIDE [Concomitant]
     Dosage: UNK
  4. CELEBREX [Suspect]
     Indication: ARTHRITIS
     Dosage: 200 MG, 2X/DAY
     Route: 048

REACTIONS (3)
  - SCIATIC NERVE NEUROPATHY [None]
  - INTERVERTEBRAL DISC PROTRUSION [None]
  - DYSSTASIA [None]
